FAERS Safety Report 25050545 (Version 1)
Quarter: 2025Q1

REPORT INFORMATION
  Report Type: Spontaneous
  Country: US (occurrence: US)
  Receive Date: 20250307
  Receipt Date: 20250307
  Transmission Date: 20250408
  Serious: No
  Sender: INCYTE
  Company Number: US-EVENT-001889

PATIENT
  Age: 42 Year

DRUGS (1)
  1. JAKAFI [Suspect]
     Active Substance: RUXOLITINIB
     Indication: Immunodeficiency
     Dosage: 5 MILLIGRAM, BID
     Route: 065

REACTIONS (1)
  - Off label use [Unknown]
